FAERS Safety Report 11225266 (Version 2)
Quarter: 2015Q3

REPORT INFORMATION
  Report Type: Report from Study
  Country: KR (occurrence: KR)
  Receive Date: 20150629
  Receipt Date: 20150710
  Transmission Date: 20151125
  Serious: Yes (Death)
  Sender: FDA-Public Use
  Company Number: KR-KOWA-15JP000704AA

PATIENT
  Age: 86 Year
  Sex: Female
  Weight: 45 kg

DRUGS (3)
  1. PLAVITOR [Concomitant]
     Dosage: 75 MG, UNK
     Route: 065
     Dates: start: 20120426, end: 20150523
  2. PITAVASTATIN [Suspect]
     Active Substance: PITAVASTATIN
     Indication: HYPERLIPIDAEMIA
     Dosage: 2 MG, QD
     Route: 048
     Dates: start: 20140610, end: 20150523
  3. EXFORGE [Concomitant]
     Active Substance: AMLODIPINE BESYLATE\VALSARTAN
     Indication: HYPERTENSION
     Dosage: 0.5 DF, UNK
     Route: 048
     Dates: start: 20140610, end: 20150523

REACTIONS (1)
  - Death [Fatal]

NARRATIVE: CASE EVENT DATE: 20150523
